FAERS Safety Report 23948416 (Version 3)
Quarter: 2025Q2

REPORT INFORMATION
  Report Type: Spontaneous
  Country: US (occurrence: US)
  Receive Date: 20240607
  Receipt Date: 20250621
  Transmission Date: 20250716
  Serious: No
  Sender: UNITED THERAPEUTICS
  Company Number: US-UNITED THERAPEUTICS-UNT-2024-015173

PATIENT
  Sex: Female
  Weight: 75.737 kg

DRUGS (19)
  1. TYVASO [Suspect]
     Active Substance: TREPROSTINIL
     Indication: Pulmonary arterial hypertension
     Dosage: 18 ?G, QID
     Dates: start: 2024
  2. TYVASO [Suspect]
     Active Substance: TREPROSTINIL
     Dates: start: 20240404, end: 20240520
  3. UPTRAVI [Suspect]
     Active Substance: SELEXIPAG
     Indication: Pulmonary arterial hypertension
  4. UPTRAVI [Suspect]
     Active Substance: SELEXIPAG
  5. UPTRAVI [Suspect]
     Active Substance: SELEXIPAG
     Dosage: UNK, BID (REDUCED DOSE EITHER BY 200 OR 400)
  6. UPTRAVI [Suspect]
     Active Substance: SELEXIPAG
  7. TYLENOL [Concomitant]
     Active Substance: ACETAMINOPHEN
     Indication: Product used for unknown indication
  8. OPSUMIT [Concomitant]
     Active Substance: MACITENTAN
     Indication: Product used for unknown indication
  9. LINZESS [Concomitant]
     Active Substance: LINACLOTIDE
     Indication: Product used for unknown indication
  10. TADALAFIL [Concomitant]
     Active Substance: TADALAFIL
     Indication: Product used for unknown indication
  11. VERAPAMIL [Concomitant]
     Active Substance: VERAPAMIL HYDROCHLORIDE
     Indication: Product used for unknown indication
  12. SPIRONOLACTONE [Concomitant]
     Active Substance: SPIRONOLACTONE
     Indication: Product used for unknown indication
  13. LEVOTHYROXINE [Concomitant]
     Active Substance: LEVOTHYROXINE
     Indication: Product used for unknown indication
  14. OXYGEN [Concomitant]
     Active Substance: OXYGEN
     Indication: Product used for unknown indication
  15. BUMETANIDE [Concomitant]
     Active Substance: BUMETANIDE
     Indication: Product used for unknown indication
  16. DIGOXIN [Concomitant]
     Active Substance: DIGOXIN
     Indication: Product used for unknown indication
  17. ALBUTEROL\IPRATROPIUM [Concomitant]
     Active Substance: ALBUTEROL\IPRATROPIUM
     Indication: Product used for unknown indication
  18. SYMBICORT [Concomitant]
     Active Substance: BUDESONIDE\FORMOTEROL FUMARATE DIHYDRATE
     Indication: Product used for unknown indication
  19. MUCINEX [Concomitant]
     Active Substance: GUAIFENESIN
     Indication: Product used for unknown indication

REACTIONS (8)
  - Cough [Not Recovered/Not Resolved]
  - Dizziness [Unknown]
  - Hypertension [Unknown]
  - Oxygen saturation decreased [Unknown]
  - Oedema [Recovering/Resolving]
  - Electric shock sensation [Recovering/Resolving]
  - Feeling abnormal [Recovering/Resolving]
  - Maternal exposure during pregnancy [Unknown]

NARRATIVE: CASE EVENT DATE: 20220101
